FAERS Safety Report 7954919-5 (Version None)
Quarter: 2011Q4

REPORT INFORMATION
  Report Type: 
  Country: None (occurrence: None)
  Receive Date: 20111202
  Receipt Date: 20111201
  Transmission Date: 20120403
  Serious: Yes (Hospitalization)
  Sender: FDA-Public Use
  Company Number: JP-ABBOTT-10P-087-0687460-00

PATIENT
  Sex: Male
  Weight: 52 kg

DRUGS (10)
  1. MESALAMINE [Concomitant]
     Indication: CROHN'S DISEASE
     Route: 048
  2. LACTOMIN [Concomitant]
     Indication: CROHN'S DISEASE
  3. KETOPROFEN [Concomitant]
     Indication: BACK PAIN
     Route: 062
  4. BIFIDOBACTERIUM HYDRATE [Concomitant]
     Indication: PRODUCT USED FOR UNKNOWN INDICATION
  5. HUMIRA [Suspect]
     Indication: CROHN'S DISEASE
     Route: 058
     Dates: start: 20101116, end: 20101116
  6. FLUNITRAZEPAM [Concomitant]
     Indication: INSOMNIA
     Route: 048
  7. ETIZOLAM [Concomitant]
     Indication: INSOMNIA
  8. BROTIZOLAM [Concomitant]
     Indication: INSOMNIA
  9. MERCAPTOPURINE [Concomitant]
     Indication: CROHN'S DISEASE
  10. CHINESE HERBAL MEDICINE [Concomitant]
     Indication: CROHN'S DISEASE

REACTIONS (2)
  - HEADACHE [None]
  - MALAISE [None]
